FAERS Safety Report 5197074-X (Version None)
Quarter: 2006Q4

REPORT INFORMATION
  Report Type: 
  Country: None (occurrence: None)
  Receive Date: 20061227
  Receipt Date: 20061214
  Transmission Date: 20070319
  Serious: Yes (Other)
  Sender: FDA-Public Use
  Company Number: 2006154178

PATIENT
  Sex: Female

DRUGS (2)
  1. DIABINESE [Suspect]
     Indication: INFLUENZA
     Dosage: 600  MG (600 MG, 1 IN 1 D)
     Dates: start: 19760101
  2. DIABINESE [Suspect]
     Indication: DIABETES MELLITUS
     Dosage: ORAL
     Route: 048
     Dates: start: 19840101, end: 19940101

REACTIONS (1)
  - HEPATIC PAIN [None]
